FAERS Safety Report 5520715-1 (Version None)
Quarter: 2007Q4

REPORT INFORMATION
  Report Type: 
  Country: None (occurrence: None)
  Receive Date: 20071119
  Receipt Date: 20071112
  Transmission Date: 20080405
  Serious: Yes (Other)
  Sender: FDA-Public Use
  Company Number: JP-BRISTOL-MYERS SQUIBB COMPANY-13978895

PATIENT
  Age: 63 Year
  Sex: Male

DRUGS (1)
  1. TRIAMCINOLONE ACETONIDE [Suspect]
     Indication: ENDOCRINE OPHTHALMOPATHY
     Dosage: SUBTENON INJECTION.
     Route: 031

REACTIONS (1)
  - ENDOPHTHALMITIS [None]
